FAERS Safety Report 8138404-6 (Version None)
Quarter: 2012Q1

REPORT INFORMATION
  Report Type: 
  Country: None (occurrence: None)
  Receive Date: 20120215
  Receipt Date: 20120207
  Transmission Date: 20120608
  Serious: Yes (Other)
  Sender: FDA-Public Use
  Company Number: PL-ROCHE-1026007

PATIENT
  Age: 59 Year
  Sex: Female
  Weight: 87.3 kg

DRUGS (4)
  1. VEMURAFENIB [Suspect]
     Indication: MALIGNANT MELANOMA
     Dosage: LAST DOSE PRIOR TO SAE 13 DEC 2011.
     Route: 048
     Dates: start: 20111018
  2. RAMIPRIL [Concomitant]
     Dates: start: 19950101
  3. SIMVASTATIN [Concomitant]
     Dosage: REPORTED AS 'SIMVASTATINUM'
     Dates: start: 19950101
  4. ACIDUM ACETYLSALICYLICUM [Concomitant]
     Dates: start: 19950101

REACTIONS (1)
  - ACANTHOSIS [None]
